FAERS Safety Report 8062208-6 (Version None)
Quarter: 2012Q1

REPORT INFORMATION
  Report Type: 
  Country: None (occurrence: None)
  Receive Date: 20120120
  Receipt Date: 20120120
  Transmission Date: 20120608
  Serious: Yes (Other)
  Sender: FDA-Public Use
  Company Number: None

PATIENT
  Age: 60 Year
  Sex: Male

DRUGS (20)
  1. CALCIUM CARBONATE [Concomitant]
  2. LETAIRIS [Suspect]
     Indication: PULMONARY HYPERTENSION
     Dosage: 5MG DAILY BY MOUTH
     Route: 048
     Dates: start: 20120105, end: 20120111
  3. CHOLECALCIFEROL [Concomitant]
  4. BUPROPION HYDROCHLORIDE [Concomitant]
  5. TEMAZEPAM [Concomitant]
  6. NIACIN [Concomitant]
  7. GLUCOSAMINE [Concomitant]
  8. REGULAR INSULIN [Concomitant]
  9. FUROSEMIDE [Concomitant]
  10. PROPRANOLOL [Concomitant]
  11. NPH INSULIN [Concomitant]
  12. ALBUTEROL [Concomitant]
  13. NORCO [Concomitant]
  14. ALPRAZOLAM [Concomitant]
  15. SILDENAFIL [Concomitant]
  16. LISINOPRIL [Concomitant]
  17. FENOFIBRATE [Concomitant]
  18. BISMUTH [Concomitant]
  19. ALLOPURINOL [Concomitant]
  20. HYDROXYZINE [Concomitant]

REACTIONS (4)
  - MYALGIA [None]
  - PAIN IN JAW [None]
  - HEADACHE [None]
  - ARTHRALGIA [None]
